FAERS Safety Report 6661559-7 (Version None)
Quarter: 2010Q1

REPORT INFORMATION
  Report Type: 
  Country: None (occurrence: None)
  Receive Date: 20100331
  Receipt Date: 20100329
  Transmission Date: 20100710
  Serious: Yes (Death, Other)
  Sender: FDA-Public Use
  Company Number: US-WYE-H14352410

PATIENT
  Sex: Female

DRUGS (5)
  1. PREMPRO [Suspect]
  2. OGEN [Suspect]
  3. MEDROXYPROGESTERONE ACETATE [Suspect]
  4. PREMARIN [Suspect]
  5. PROVERA [Suspect]

REACTIONS (1)
  - BREAST CANCER METASTATIC [None]
